FAERS Safety Report 8887850 (Version 1)
Quarter: 2012Q4

REPORT INFORMATION
  Report Type: Spontaneous
  Country: US (occurrence: None)
  Receive Date: 20121101
  Receipt Date: 20121101
  Transmission Date: 20130627
  Serious: No
  Sender: FDA-Public Use
  Company Number: None

PATIENT
  Age: 36 Year
  Sex: Male
  Weight: 99.1 kg

DRUGS (2)
  1. CLINDAMYCIN [Suspect]
     Indication: DOG BITE
     Route: 048
     Dates: start: 20121020, end: 20121020
  2. AMOXICILLIN/CLAVULANATE POTASSIUM [Suspect]
     Indication: DOG BITE
     Dosage: 1 TAB
     Route: 048
     Dates: start: 20121012, end: 20121020

REACTIONS (1)
  - Anaphylactic reaction [None]
